FAERS Safety Report 9195689 (Version 1)
Quarter: 2013Q1

REPORT INFORMATION
  Report Type: Spontaneous
  Country: US (occurrence: None)
  Receive Date: 20120703
  Receipt Date: 20120703
  Transmission Date: 20140127
  Serious: No
  Sender: FDA-Public Use
  Company Number: PHEH2012US010039

PATIENT
  Age: 51 Year
  Sex: Female

DRUGS (1)
  1. GILENYA (FTY) CAPSULE, 0.5 MG [Concomitant]
     Route: 048
     Dates: start: 20120423

REACTIONS (4)
  - Nausea [None]
  - Eye pain [None]
  - Depression [None]
  - Abnormal sensation in eye [None]
